FAERS Safety Report 24682625 (Version 1)
Quarter: 2024Q4

REPORT INFORMATION
  Report Type: Other
  Country: AU (occurrence: AU)
  Receive Date: 20241130
  Receipt Date: 20241130
  Transmission Date: 20250114
  Serious: Yes (Other)
  Sender: DEXCEL
  Company Number: AU-DEXPHARM-2024-4581

PATIENT
  Age: 62 Year
  Sex: Female

DRUGS (5)
  1. SOTALOL [Suspect]
     Active Substance: SOTALOL
     Indication: Atrial fibrillation
     Dosage: 1620 MG/DAY
  2. ESOMEPRAZOLE [Suspect]
     Active Substance: ESOMEPRAZOLE
  3. WARFARIN [Suspect]
     Active Substance: WARFARIN
  4. THYROXINE [Suspect]
     Active Substance: LEVOTHYROXINE
  5. CANDESARTAN [Suspect]
     Active Substance: CANDESARTAN

REACTIONS (1)
  - Electrocardiogram QT prolonged [Unknown]
